FAERS Safety Report 7062705-6 (Version None)
Quarter: 2010Q4

REPORT INFORMATION
  Report Type: 
  Country: None (occurrence: None)
  Receive Date: 20101026
  Receipt Date: 20091130
  Transmission Date: 20110411
  Serious: Yes (Other)
  Sender: FDA-Public Use
  Company Number: US-PFIZER INC-2009306259

PATIENT
  Sex: Male
  Weight: 86.168 kg

DRUGS (4)
  1. LIPITOR [Suspect]
     Indication: HYPERCHOLESTEROLAEMIA
     Dosage: 20 MG, 1X/DAY
     Route: 048
  2. PEPCID [Concomitant]
  3. GLUCOSAMINE [Concomitant]
  4. TOPROL-XL [Concomitant]

REACTIONS (6)
  - ARTHRALGIA [None]
  - BACK PAIN [None]
  - GOUT [None]
  - MYOGLOBIN URINE PRESENT [None]
  - PAIN [None]
  - PAIN IN EXTREMITY [None]
